FAERS Safety Report 13802370 (Version 3)
Quarter: 2018Q3

REPORT INFORMATION
  Report Type: Report from Study
  Country: US (occurrence: US)
  Receive Date: 20170728
  Receipt Date: 20180912
  Transmission Date: 20181010
  Serious: No
  Sender: FDA-Public Use
  Company Number: PHEH2017US023419

PATIENT
  Sex: Female
  Weight: 72.57 kg

DRUGS (1)
  1. COSENTYX [Suspect]
     Active Substance: SECUKINUMAB
     Indication: PSORIASIS
     Dosage: 300 MG, QMO (Q4 WEEKS)
     Route: 058
     Dates: start: 201705

REACTIONS (3)
  - Diarrhoea [Unknown]
  - Macule [Unknown]
  - Migraine [Unknown]
